FAERS Safety Report 15118838 (Version 1)
Quarter: 2018Q3

REPORT INFORMATION
  Report Type: Spontaneous
  Country: US (occurrence: US)
  Receive Date: 20180709
  Receipt Date: 20180709
  Transmission Date: 20181010
  Serious: No
  Sender: FDA-Public Use
  Company Number: US-GLENMARK PHARMACEUTICALS-2017GMK030164

PATIENT

DRUGS (1)
  1. ALCLOMETASONE DIPROPIONATE. [Suspect]
     Active Substance: ALCLOMETASONE DIPROPIONATE
     Indication: PRECANCEROUS SKIN LESION
     Dosage: UNK UNK, BID
     Route: 065

REACTIONS (4)
  - Product use in unapproved indication [Unknown]
  - Drug effect incomplete [Unknown]
  - Burning sensation [Unknown]
  - Skin haemorrhage [Unknown]
